FAERS Safety Report 9747986 (Version 1)
Quarter: 2013Q4

REPORT INFORMATION
  Report Type: Spontaneous
  Country: US (occurrence: None)
  Receive Date: 20131206
  Receipt Date: 20131206
  Transmission Date: 20140711
  Serious: Yes (Other)
  Sender: FDA-Public Use
  Company Number: A1051761A

PATIENT
  Age: 54 Year
  Sex: Male

DRUGS (3)
  1. ALGINIC ACID + ALUMINIUN HYDROXIDE + MAGESIUM CARBONATE (ALGIN.AC+ALUM.HYDO+MAGNE) [Suspect]
     Indication: PRODUCT USED FOR UNKNOWN INDICATION
     Dates: start: 201311
  2. ALKA-SELTZER PLUS NOS [Suspect]
     Indication: PRODUCT USED FOR UNKNOWN INDICATION
  3. PRAVASTATIN [Suspect]
     Indication: PRODUCT USED FOR UNKNOWN INDICATION

REACTIONS (4)
  - Oral candidiasis [None]
  - Stomatitis [None]
  - Tongue disorder [None]
  - Tongue discolouration [None]
